FAERS Safety Report 10235246 (Version 1)
Quarter: 2014Q2

REPORT INFORMATION
  Report Type: Spontaneous
  Country: US (occurrence: US)
  Receive Date: 20140613
  Receipt Date: 20140613
  Transmission Date: 20141212
  Serious: Yes (Hospitalization)
  Sender: FDA-Public Use
  Company Number: US-B.I. PHARMACEUTICALS,INC./RIDGEFIELD-2014-BI-25763BP

PATIENT
  Sex: Female
  Weight: 31 kg

DRUGS (15)
  1. SPIRIVA [Suspect]
     Indication: CHRONIC OBSTRUCTIVE PULMONARY DISEASE
     Dosage: 18 MG
     Route: 055
     Dates: start: 2009
  2. SPIRIVA [Suspect]
     Dosage: 36 MG
     Route: 055
     Dates: start: 2010, end: 2010
  3. DEXILANT [Concomitant]
     Indication: OESOPHAGEAL DISORDER
     Dosage: 120 MG
     Route: 048
  4. ESTROGEN [Concomitant]
     Indication: HORMONE REPLACEMENT THERAPY
     Route: 048
  5. PREMARIN PATCH [Concomitant]
     Indication: HORMONE REPLACEMENT THERAPY
     Dosage: FORMULATION: PATCH
     Route: 050
  6. VAGINAL CREAM [Concomitant]
     Indication: VULVOVAGINAL DRYNESS
     Route: 061
  7. LOPID [Concomitant]
     Indication: BLOOD TRIGLYCERIDES INCREASED
     Dosage: 1200 MG
     Route: 048
  8. SYNTHROID [Concomitant]
     Indication: HYPOTHYROIDISM
     Dosage: 50 MCG
     Route: 048
  9. SINGULAIR [Concomitant]
     Indication: ASTHMA
     Dosage: 10 MG
     Route: 048
  10. CYMBALTA [Concomitant]
     Indication: DEPRESSION
     Dosage: 60 MG
     Route: 048
  11. CYMBALTA [Concomitant]
     Indication: PAIN
  12. ATIVAN [Concomitant]
     Indication: ANXIETY
     Dosage: 1 MG
     Route: 048
     Dates: start: 2013
  13. CARISOPRODOL [Concomitant]
     Indication: MUSCLE RELAXANT THERAPY
     Dosage: 1400 MG
     Route: 048
  14. LORTAB [Concomitant]
     Indication: ARTHRITIS
     Dosage: DOSE PER APPLICATION: 10MG/325MG; DAILY DOSE: 40MG/1300MG
     Route: 048
     Dates: start: 1996
  15. VITAMIN [Concomitant]
     Indication: SUPPLEMENTATION THERAPY
     Route: 048

REACTIONS (4)
  - Upper limb fracture [Recovered/Resolved]
  - Fungal infection [Recovered/Resolved]
  - Cellulitis [Recovered/Resolved]
  - Overdose [Recovered/Resolved]
